FAERS Safety Report 11788856 (Version 1)
Quarter: 2015Q4

REPORT INFORMATION
  Report Type: Spontaneous
  Country: GB (occurrence: GB)
  Receive Date: 20151201
  Receipt Date: 20151201
  Transmission Date: 20160305
  Serious: Yes (Other)
  Sender: FDA-Public Use
  Company Number: GB-WATSON-2015-16840

PATIENT
  Age: 24 Year
  Sex: Female
  Weight: 85.72 kg

DRUGS (1)
  1. DIAZEPAM (UNKNOWN) [Suspect]
     Active Substance: DIAZEPAM
     Indication: MUSCLE RELAXANT THERAPY
     Dosage: 2 MG, UNKNOWN
     Route: 048

REACTIONS (2)
  - Somnolence [Recovered/Resolved]
  - Paraesthesia [Recovered/Resolved]
